FAERS Safety Report 5912863-9 (Version None)
Quarter: 2008Q4

REPORT INFORMATION
  Report Type: 
  Country: None (occurrence: None)
  Receive Date: 20081003
  Receipt Date: 20080918
  Transmission Date: 20090506
  Serious: Yes (Hospitalization)
  Sender: FDA-Public Use
  Company Number: AZAUS200800317

PATIENT
  Age: 81 Year
  Sex: Male
  Weight: 76 kg

DRUGS (11)
  1. VIDAZA [Suspect]
     Indication: MYELODYSPLASTIC SYNDROME
     Dosage: 75 MG/M2, DAILY X 7 DAYS, SUBCUTANEOUS
     Route: 058
     Dates: start: 20080825, end: 20080903
  2. NEXIUM [Concomitant]
  3. NORVASC [Concomitant]
  4. LAMTICAL (LAMOTRIGINE) [Concomitant]
  5. SPIRONOLACTONE [Concomitant]
  6. TRAMADOL HCL [Concomitant]
  7. ARICEPT [Concomitant]
  8. FLOMAX [Concomitant]
  9. LIPITOR [Concomitant]
  10. MICARDIS (TELMASARTAN) [Concomitant]
  11. NITRO PATCH (GLYCERYL TRINITRATE) [Concomitant]

REACTIONS (1)
  - HERPES ZOSTER DISSEMINATED [None]
